FAERS Safety Report 7755689-6 (Version None)
Quarter: 2011Q3

REPORT INFORMATION
  Report Type: 
  Country: None (occurrence: None)
  Receive Date: 20110915
  Receipt Date: 20110915
  Transmission Date: 20111222
  Serious: No
  Sender: FDA-Public Use
  Company Number: None

PATIENT
  Age: 46 Year
  Sex: Female
  Weight: 47.6277 kg

DRUGS (1)
  1. METOPROLOL TARTRATE [Suspect]
     Dosage: 25 MG ONCE A DAY
     Dates: start: 20090401, end: 20110801

REACTIONS (9)
  - FEAR [None]
  - FEELING ABNORMAL [None]
  - THINKING ABNORMAL [None]
  - NERVOUSNESS [None]
  - ABNORMAL BEHAVIOUR [None]
  - ANXIETY [None]
  - BLOOD PRESSURE SYSTOLIC DECREASED [None]
  - ALOPECIA [None]
  - TREMOR [None]
